FAERS Safety Report 22017626 (Version 1)
Quarter: 2023Q1

REPORT INFORMATION
  Report Type: Spontaneous
  Country: US (occurrence: None)
  Receive Date: 20230217
  Receipt Date: 20230217
  Transmission Date: 20230418
  Serious: Yes (Death)
  Sender: FDA-Public Use
  Company Number: None

PATIENT
  Age: 71 Year
  Sex: Male
  Weight: 121.79 kg

DRUGS (21)
  1. MEKINIST [Suspect]
     Active Substance: TRAMETINIB DIMETHYL SULFOXIDE
     Indication: Lung carcinoma cell type unspecified stage 0
     Dosage: OTHER FREQUENCY : EVERY AM;?
     Route: 048
     Dates: end: 20230211
  2. TAFINLAR [Suspect]
     Active Substance: DABRAFENIB MESYLATE
     Dosage: FREQUENCY : TWICE A DAY;?
     Route: 048
  3. ALBUTEROL [Concomitant]
  4. ALLOPURINOL [Concomitant]
     Active Substance: ALLOPURINOL
  5. AMOXICILLIN-POT CLAVULANATE [Concomitant]
  6. ATORVASTATIN [Concomitant]
  7. AUGMENTIN [Concomitant]
  8. BUDESONIDE [Concomitant]
  9. CLOPIDOGREL [Concomitant]
  10. COLACE [Concomitant]
  11. DILT-XR [Concomitant]
  12. FUROSEMIDE [Concomitant]
  13. GABAPENTIN [Concomitant]
  14. METFORMIN [Concomitant]
  15. MUCUS RELIEF D [Concomitant]
  16. NORCO [Concomitant]
  17. OXYCODONE [Concomitant]
  18. PREDNISONE [Concomitant]
  19. TAMSULOSIN [Concomitant]
  20. TRELEGY [Concomitant]
  21. VENTOLIN HFA [Concomitant]

REACTIONS (1)
  - Neoplasm malignant [None]

NARRATIVE: CASE EVENT DATE: 20230211
